FAERS Safety Report 8586422 (Version 2)
Quarter: 2012Q4

REPORT INFORMATION
  Report Type: 
  Country: US (occurrence: US)
  Receive Date: 20120530
  Receipt Date: 20121009
  Transmission Date: 20130627
  Serious: Yes (Hospitalization, Other)
  Sender: FDA-Public Use
  Company Number: US-ROCHE-1071624

PATIENT
  Age: 25 None
  Sex: Male

DRUGS (2)
  1. ACCUTANE [Suspect]
     Indication: PRODUCT USED FOR UNKNOWN INDICATION
     Route: 065
     Dates: start: 1990, end: 1991
  2. ACCUTANE [Suspect]
     Route: 065
     Dates: start: 1996, end: 1997

REACTIONS (6)
  - Crohn^s disease [Unknown]
  - Injury [Unknown]
  - Inflammatory bowel disease [Unknown]
  - Anal fistula [Unknown]
  - Anal fistula [Unknown]
  - Perirectal abscess [Unknown]
